FAERS Safety Report 4457370-8 (Version None)
Quarter: 2004Q3

REPORT INFORMATION
  Report Type: 
  Country: None (occurrence: None)
  Receive Date: 20040922
  Receipt Date: 20040903
  Transmission Date: 20050211
  Serious: Yes (Hospitalization, Disabling, Other)
  Sender: FDA-Public Use
  Company Number: USA040771721

PATIENT
  Age: 27 Year
  Sex: Male
  Weight: 123 kg

DRUGS (5)
  1. KEFZOL [Suspect]
     Indication: SINUSITIS
     Dosage: 1 G
     Dates: start: 20020921, end: 20020921
  2. CIPRO [Concomitant]
  3. TEQUIN [Concomitant]
  4. FLONASE [Concomitant]
  5. METHYLPREDNISOLONE [Concomitant]

REACTIONS (14)
  - ANTINUCLEAR ANTIBODY POSITIVE [None]
  - CONFUSIONAL STATE [None]
  - DERMATOMYOSITIS [None]
  - DYSSTASIA [None]
  - ERYTHEMA [None]
  - INJECTION SITE INDURATION [None]
  - INJECTION SITE PAIN [None]
  - LACRIMATION INCREASED [None]
  - MASS [None]
  - PAIN [None]
  - POLYMYOSITIS [None]
  - RETCHING [None]
  - RHABDOMYOLYSIS [None]
  - WEIGHT DECREASED [None]
